FAERS Safety Report 8163778-X (Version None)
Quarter: 2012Q1

REPORT INFORMATION
  Report Type: 
  Country: None (occurrence: None)
  Receive Date: 20120224
  Receipt Date: 20120217
  Transmission Date: 20120608
  Serious: Yes (Hospitalization)
  Sender: FDA-Public Use
  Company Number: PHHY2011AR105652

PATIENT
  Sex: Male

DRUGS (3)
  1. ALBUTEROL SULFATE AUTOHALER [Concomitant]
  2. FLUTICASONE PROPIONATE/SALMETEROL [Concomitant]
  3. ONBREZ [Suspect]
     Indication: CHRONIC OBSTRUCTIVE PULMONARY DISEASE
     Dosage: 1 DF, QD
     Dates: start: 20111122

REACTIONS (8)
  - ATRIAL FLUTTER [None]
  - SPUTUM DECREASED [None]
  - ATRIAL FIBRILLATION [None]
  - ANXIETY [None]
  - COUGH [None]
  - MUSCULAR WEAKNESS [None]
  - SPUTUM DISCOLOURED [None]
  - WEIGHT DECREASED [None]
